FAERS Safety Report 8885607 (Version 1)
Quarter: 2012Q4

REPORT INFORMATION
  Report Type: 
  Country: US (occurrence: US)
  Receive Date: 20121101
  Receipt Date: 20121101
  Transmission Date: 20130627
  Serious: Yes (Hospitalization)
  Sender: FDA-Public Use
  Company Number: US-PFIZER INC-2012269804

PATIENT
  Age: 66 Year
  Sex: Male

DRUGS (2)
  1. REVATIO [Suspect]
     Dosage: UNK
  2. AMBRISENTAN [Suspect]
     Indication: PULMONARY ARTERIAL HYPERTENSION
     Dosage: 5 mg, 1x/day
     Route: 048
     Dates: start: 20110109

REACTIONS (1)
  - Syncope [Unknown]
